FAERS Safety Report 16063482 (Version 3)
Quarter: 2019Q1

REPORT INFORMATION
  Report Type: Spontaneous
  Country: US (occurrence: US)
  Receive Date: 20190312
  Receipt Date: 20190322
  Transmission Date: 20190418
  Serious: Yes (Hospitalization, Other)
  Sender: FDA-Public Use
  Company Number: US-GILEAD-2019-0395194

PATIENT
  Age: 31 Year
  Sex: Female

DRUGS (7)
  1. FLUDARABINE [Suspect]
     Active Substance: FLUDARABINE PHOSPHATE
     Indication: BONE MARROW CONDITIONING REGIMEN
     Dosage: UNK
     Route: 065
     Dates: start: 20180914, end: 20180917
  2. YESCARTA [Suspect]
     Active Substance: AXICABTAGENE CILOLEUCEL
     Indication: B-CELL LYMPHOMA
     Dosage: UNK
     Route: 065
     Dates: start: 20180920, end: 20180920
  3. ALLOPURINOL. [Concomitant]
     Active Substance: ALLOPURINOL
  4. CYTOXAN [Suspect]
     Active Substance: CYCLOPHOSPHAMIDE
     Indication: BONE MARROW CONDITIONING REGIMEN
     Dosage: UNK
     Route: 065
     Dates: start: 20180914, end: 20180917
  5. ACYCLOVIR [ACICLOVIR] [Concomitant]
     Active Substance: ACYCLOVIR
  6. CEFEPIME [Concomitant]
     Active Substance: CEFEPIME HYDROCHLORIDE
  7. YESCARTA [Suspect]
     Active Substance: AXICABTAGENE CILOLEUCEL
     Indication: PLASMABLASTIC LYMPHOMA

REACTIONS (12)
  - Pleural effusion [Unknown]
  - Angioedema [Recovering/Resolving]
  - Plasmablastic lymphoma [Unknown]
  - Mental status changes [Recovering/Resolving]
  - Tremor [Not Recovered/Not Resolved]
  - Sinus tachycardia [Unknown]
  - Encephalopathy [Unknown]
  - Confusional state [Unknown]
  - Chest pain [Recovered/Resolved]
  - Hallucination [Recovering/Resolving]
  - Somnolence [Unknown]
  - Pyrexia [Unknown]

NARRATIVE: CASE EVENT DATE: 201809
